FAERS Safety Report 13895334 (Version 1)
Quarter: 2017Q3

REPORT INFORMATION
  Report Type: Spontaneous
  Country: US (occurrence: US)
  Receive Date: 20170818
  Receipt Date: 20170818
  Transmission Date: 20171127
  Serious: Yes (Disabling)
  Sender: FDA-Public Use
  Company Number: None

PATIENT
  Age: 53 Year
  Sex: Female
  Weight: 66.6 kg

DRUGS (13)
  1. BOTOX [Suspect]
     Active Substance: ONABOTULINUMTOXINA
     Indication: MIGRAINE
     Route: 058
     Dates: start: 20130106, end: 20170810
  2. QVAR [Concomitant]
     Active Substance: BECLOMETHASONE DIPROPIONATE
  3. PREDNISONE. [Concomitant]
     Active Substance: PREDNISONE
  4. TOPAMAX [Concomitant]
     Active Substance: TOPIRAMATE
  5. ZANTAC [Concomitant]
     Active Substance: RANITIDINE HYDROCHLORIDE
  6. CELEXA [Concomitant]
     Active Substance: CITALOPRAM HYDROBROMIDE
  7. NAMENDA [Concomitant]
     Active Substance: MEMANTINE HYDROCHLORIDE
  8. IMITREX [Concomitant]
     Active Substance: SUMATRIPTAN SUCCINATE
  9. LAMICTAL [Concomitant]
     Active Substance: LAMOTRIGINE
  10. ATIVAN [Concomitant]
     Active Substance: LORAZEPAM
  11. VENTOLIN [Concomitant]
     Active Substance: ALBUTEROL SULFATE
  12. SYNTHROID [Concomitant]
     Active Substance: LEVOTHYROXINE SODIUM
  13. PHOLLIPS MILK OF MAGNESIA [Concomitant]

REACTIONS (13)
  - Gait disturbance [None]
  - Pain [None]
  - Gait inability [None]
  - Nervous system disorder [None]
  - Malaise [None]
  - Dysarthria [None]
  - Speech disorder [None]
  - Dizziness [None]
  - Feeling abnormal [None]
  - Impaired driving ability [None]
  - Facial paralysis [None]
  - Headache [None]
  - Nausea [None]

NARRATIVE: CASE EVENT DATE: 20170810
